FAERS Safety Report 8312157-0 (Version None)
Quarter: 2012Q2

REPORT INFORMATION
  Report Type: 
  Country: None (occurrence: None)
  Receive Date: 20120425
  Receipt Date: 20120410
  Transmission Date: 20120825
  Serious: Yes (Other)
  Sender: FDA-Public Use
  Company Number: US-ENDO PHARMACEUTICALS INC.-OPIR20120046

PATIENT
  Sex: Female

DRUGS (1)
  1. OPANA [Suspect]
     Indication: PAIN
     Route: 048

REACTIONS (1)
  - DRUG ABUSE [None]
